FAERS Safety Report 4487400-9 (Version None)
Quarter: 2004Q4

REPORT INFORMATION
  Report Type: 
  Country: None (occurrence: None)
  Receive Date: 20041027
  Receipt Date: 20041007
  Transmission Date: 20050328
  Serious: No
  Sender: FDA-Public Use
  Company Number: US-MERCK-0410USA01205

PATIENT
  Age: 78 Year
  Sex: Female
  Weight: 61 kg

DRUGS (5)
  1. VIOXX [Suspect]
     Indication: ARTHRITIS
     Route: 048
     Dates: end: 20040930
  2. VIOXX [Suspect]
     Route: 048
  3. ATIVAN [Concomitant]
     Route: 065
  4. TYLENOL [Concomitant]
     Route: 065
  5. PROTONIX [Concomitant]
     Route: 065

REACTIONS (2)
  - AORTIC VALVE INCOMPETENCE [None]
  - MITRAL VALVE INCOMPETENCE [None]
